FAERS Safety Report 11933506 (Version 1)
Quarter: 2016Q1

REPORT INFORMATION
  Report Type: Spontaneous
  Country: US (occurrence: None)
  Receive Date: 20160120
  Receipt Date: 20160120
  Transmission Date: 20160526
  Serious: Yes (Other)
  Sender: FDA-Public Use
  Company Number: None

PATIENT
  Age: 38 Year
  Sex: Female

DRUGS (1)
  1. GUAIFENESIN AC [Suspect]
     Active Substance: CODEINE PHOSPHATE\GUAIFENESIN
     Indication: COUGH
     Dosage: 1-2 TSP
     Route: 048
     Dates: start: 20160104, end: 20160109

REACTIONS (1)
  - Hallucination [None]

NARRATIVE: CASE EVENT DATE: 20160109
